FAERS Safety Report 18314300 (Version 1)
Quarter: 2020Q3

REPORT INFORMATION
  Report Type: Spontaneous
  Country: US (occurrence: US)
  Receive Date: 20200925
  Receipt Date: 20200925
  Transmission Date: 20201103
  Serious: Yes (Other)
  Sender: FDA-Public Use
  Company Number: US-ELI_LILLY_AND_COMPANY-US202009008536

PATIENT
  Age: 86 Year
  Sex: Male

DRUGS (1)
  1. HUMATROPE [Suspect]
     Active Substance: SOMATROPIN
     Indication: OFF LABEL USE
     Dosage: 20 U, UNKNOWN
     Route: 065

REACTIONS (3)
  - Off label use [Unknown]
  - Intracranial aneurysm [Unknown]
  - Dizziness [Recovered/Resolved]
